FAERS Safety Report 8469546-3 (Version None)
Quarter: 2012Q2

REPORT INFORMATION
  Report Type: 
  Country: None (occurrence: None)
  Receive Date: 20120323
  Receipt Date: 20110815
  Transmission Date: 20120825
  Serious: Yes (Hospitalization)
  Sender: FDA-Public Use
  Company Number: 163-21880-11081906

PATIENT
  Age: 64 Year
  Sex: Female
  Weight: 49.4421 kg

DRUGS (18)
  1. MULTI-VITAMINS [Concomitant]
  2. PRILOSEC [Concomitant]
  3. OXYCODONE HCL [Concomitant]
  4. REVLIMID [Suspect]
  5. REVLIMID [Suspect]
     Indication: MYELOFIBROSIS
     Dosage: 10 MG, DAYS 1-21 OF 28, PO
     Route: 048
     Dates: start: 20110802, end: 20110808
  6. IRON [Concomitant]
  7. DILAUDID [Concomitant]
  8. AGGRENOX [Concomitant]
  9. LISINOPRIL/HCT (PRINZIDE) [Concomitant]
  10. CALCIUM [Concomitant]
  11. AGLYLIN (ANAGRELIDE HYDROCHLORIDE) [Concomitant]
  12. HYDROXYUREA [Concomitant]
  13. PAXIL [Concomitant]
  14. LOVENOX [Concomitant]
  15. VIT B-12 (CYANOCOBALAMIN) [Concomitant]
  16. EMLA [Concomitant]
  17. NADOLOL [Concomitant]
  18. RESTORIL [Concomitant]

REACTIONS (4)
  - NAUSEA [None]
  - DIZZINESS [None]
  - CEREBROVASCULAR ACCIDENT [None]
  - MUSCULAR WEAKNESS [None]
